FAERS Safety Report 11849637 (Version 1)
Quarter: 2015Q4

REPORT INFORMATION
  Report Type: Spontaneous
  Country: US (occurrence: None)
  Receive Date: 20151217
  Receipt Date: 20151217
  Transmission Date: 20160305
  Serious: No
  Sender: FDA-Public Use
  Company Number: None

PATIENT
  Age: 55 Year
  Sex: Female
  Weight: 101.15 kg

DRUGS (6)
  1. JANUMET [Concomitant]
     Active Substance: METFORMIN HYDROCHLORIDE\SITAGLIPTIN PHOSPHATE
  2. METOPROLOL SUCC ER [Concomitant]
     Active Substance: METOPROLOL SUCCINATE
  3. LISINOPRIL. [Concomitant]
     Active Substance: LISINOPRIL
  4. COLESTROL TABLET [Concomitant]
  5. JARDIANCE [Suspect]
     Active Substance: EMPAGLIFLOZIN
     Indication: DIABETES MELLITUS
     Dosage: 1 PILL ONCE DAILY TAKEN BY MOUTH
     Route: 048
     Dates: start: 20150916, end: 20151204
  6. PIOGLITAZONE HCL [Concomitant]
     Active Substance: PIOGLITAZONE

REACTIONS (4)
  - Glycosylated haemoglobin increased [None]
  - Visual impairment [None]
  - Fungal infection [None]
  - Vulvovaginal pruritus [None]

NARRATIVE: CASE EVENT DATE: 20151204
